FAERS Safety Report 9012756 (Version 2)
Quarter: 2013Q1

REPORT INFORMATION
  Report Type: Report from Study
  Country: BE (occurrence: BE)
  Receive Date: 20130114
  Receipt Date: 20130204
  Transmission Date: 20140127
  Serious: Yes (Hospitalization)
  Sender: FDA-Public Use
  Company Number: BE-ROCHE-1179006

PATIENT
  Age: 51 Year
  Sex: Male

DRUGS (1)
  1. ZELBORAF [Suspect]
     Indication: NEOPLASM MALIGNANT
     Route: 065
     Dates: start: 20121024, end: 20121116

REACTIONS (2)
  - Rash [Unknown]
  - Disease progression [Unknown]
